FAERS Safety Report 22774012 (Version 5)
Quarter: 2023Q4

REPORT INFORMATION
  Report Type: Spontaneous
  Country: GB (occurrence: GB)
  Receive Date: 20230801
  Receipt Date: 20231230
  Transmission Date: 20240110
  Serious: Yes (Hospitalization, Other)
  Sender: FDA-Public Use
  Company Number: GB-002147023-NVSC2023GB152984

PATIENT
  Age: 48 Year
  Weight: 49.8 kg

DRUGS (32)
  1. ZOPICLONE [Suspect]
     Active Substance: ZOPICLONE
     Indication: Insomnia
     Dosage: DOSAGE TEXT: UNK
     Route: 065
     Dates: start: 20230523
  2. LEUCOVORIN [Suspect]
     Active Substance: LEUCOVORIN\LEUCOVORIN CALCIUM
     Indication: Colorectal cancer metastatic
     Dosage: 590 MG
     Route: 065
     Dates: start: 20230405
  3. LEUCOVORIN CALCIUM [Suspect]
     Active Substance: LEUCOVORIN CALCIUM
     Indication: Colorectal cancer metastatic
     Dosage: 590 MG
     Route: 065
     Dates: start: 20230405
  4. ZOPICLONE [Concomitant]
     Active Substance: ZOPICLONE
     Indication: Insomnia
     Dosage: DOSAGE TEXT: UNK
     Route: 065
     Dates: start: 20230523
  5. FLUOROURACIL [Suspect]
     Active Substance: FLUOROURACIL
     Indication: Colorectal cancer metastatic
     Dosage: DOSAGE TEXT: 600 MG, CONCENTRATE FOR SOLUTION FOR INJECTION/INFUSION
     Route: 040
     Dates: start: 20230405
  6. BEVACIZUMAB [Suspect]
     Active Substance: BEVACIZUMAB
     Indication: Colorectal cancer metastatic
     Dosage: DOSAGE TEXT: 250 MG
     Route: 042
     Dates: start: 20230405
  7. LEUCOVORIN [Suspect]
     Active Substance: LEUCOVORIN\LEUCOVORIN CALCIUM
     Indication: Colorectal cancer metastatic
     Dosage: 690 MILLIGRAM
     Route: 065
     Dates: start: 20230405
  8. LEUCOVORIN [Suspect]
     Active Substance: LEUCOVORIN\LEUCOVORIN CALCIUM
     Indication: Colorectal cancer metastatic
     Dosage: 590 MG
     Route: 065
     Dates: start: 20230405
  9. LEUCOVORIN [Suspect]
     Active Substance: LEUCOVORIN\LEUCOVORIN CALCIUM
     Indication: Colorectal cancer metastatic
     Dosage: 690 MG
     Route: 065
     Dates: start: 20230405
  10. LEUCOVORIN [Suspect]
     Active Substance: LEUCOVORIN\LEUCOVORIN CALCIUM
     Indication: Colorectal cancer metastatic
     Dosage: 590 MILLIGRAM
     Route: 065
     Dates: start: 20230405
  11. LEUCOVORIN CALCIUM [Suspect]
     Active Substance: LEUCOVORIN CALCIUM
     Indication: Colorectal cancer metastatic
     Dosage: DOSAGE TEXT: UNIT DOSE: 690 MG
     Route: 040
     Dates: start: 20230405
  12. LEUCOVORIN CALCIUM [Suspect]
     Active Substance: LEUCOVORIN CALCIUM
     Indication: Colorectal cancer metastatic
     Dosage: DOSAGE TEXT: 590 MG
     Route: 042
     Dates: start: 20230405
  13. OXALIPLATIN [Suspect]
     Active Substance: OXALIPLATIN
     Indication: Colorectal cancer metastatic
     Dosage: DOSAGE TEXT: 120 MG
     Route: 040
     Dates: start: 20230405
  14. OXALIPLATIN [Suspect]
     Active Substance: OXALIPLATIN
     Indication: Colorectal cancer metastatic
     Dosage: DOSAGE TEXT: UNIT DOSE : 120 MG
     Route: 040
  15. OXALIPLATIN [Suspect]
     Active Substance: OXALIPLATIN
     Indication: Colorectal cancer metastatic
     Dosage: DOSAGE TEXT: UNIT DOSE : 120 MG
     Route: 042
  16. OXALIPLATIN [Suspect]
     Active Substance: OXALIPLATIN
     Indication: Colorectal cancer metastatic
     Dosage: DOSAGE TEXT: 120 MG
     Route: 042
     Dates: start: 20230405
  17. OXALIPLATIN [Suspect]
     Active Substance: OXALIPLATIN
     Indication: Colorectal cancer metastatic
     Dosage: 120 MILLIGRAM
     Route: 065
  18. OXALIPLATIN [Suspect]
     Active Substance: OXALIPLATIN
     Indication: Colorectal cancer metastatic
     Dosage: 120 MILLIGRAM
     Route: 065
     Dates: start: 20230405
  19. BENZYDAMINE [Concomitant]
     Active Substance: BENZYDAMINE
     Indication: Stomatitis
     Dosage: DOSAGE TEXT: 0.15 %
     Route: 048
     Dates: start: 20230605
  20. MORPHINE SULFATE [Concomitant]
     Active Substance: MORPHINE SULFATE
     Indication: Abdominal pain lower
     Dosage: UNK
     Dates: start: 20230502
  21. MORPHINE SULFATE [Concomitant]
     Active Substance: MORPHINE SULFATE
     Indication: Abdominal pain lower
     Dosage: UNK
     Dates: start: 20230502
  22. MORPHINE SULFATE [Concomitant]
     Active Substance: MORPHINE SULFATE
     Indication: Abdominal pain lower
     Dosage: UNK
     Dates: start: 20230502
  23. MORPHINE SULFATE [Concomitant]
     Active Substance: MORPHINE SULFATE
     Indication: Abdominal pain lower
     Dosage: DOSAGE TEXT: UNK
     Route: 065
     Dates: start: 20230502
  24. MORPHINE SULFATE [Concomitant]
     Active Substance: MORPHINE SULFATE
     Indication: Abdominal pain lower
     Dosage: UNK
     Dates: start: 20230502
  25. XARELTO [Concomitant]
     Active Substance: RIVAROXABAN
     Indication: Deep vein thrombosis
     Dosage: UNK
     Dates: start: 20230608
  26. XARELTO [Concomitant]
     Active Substance: RIVAROXABAN
     Indication: Deep vein thrombosis
     Dosage: UNK
     Dates: start: 20230608
  27. XARELTO [Concomitant]
     Active Substance: RIVAROXABAN
     Indication: Deep vein thrombosis
     Dosage: DOSAGE TEXT: UNK
     Route: 065
     Dates: start: 20230608
  28. XARELTO [Concomitant]
     Active Substance: RIVAROXABAN
     Indication: Deep vein thrombosis
     Dosage: UNK
  29. XARELTO [Concomitant]
     Active Substance: RIVAROXABAN
     Indication: Deep vein thrombosis
     Dosage: UNK
  30. LEUCOVORIN CALCIUM [Suspect]
     Active Substance: LEUCOVORIN CALCIUM
     Indication: Colorectal cancer metastatic
     Dosage: 690 MG
     Route: 065
     Dates: start: 20230405
  31. LEUCOVORIN CALCIUM [Suspect]
     Active Substance: LEUCOVORIN CALCIUM
     Indication: Colorectal cancer metastatic
     Dosage: 590 MILLIGRAM
     Route: 065
     Dates: start: 20230405
  32. FLUOROURACIL [Suspect]
     Active Substance: FLUOROURACIL
     Indication: Colorectal cancer metastatic
     Dosage: 600 MG
     Route: 065
     Dates: start: 20230405

REACTIONS (4)
  - Ascites [Recovering/Resolving]
  - Colorectal cancer metastatic [Unknown]
  - Condition aggravated [Unknown]
  - Malignant neoplasm progression [Unknown]

NARRATIVE: CASE EVENT DATE: 20230630
